FAERS Safety Report 20828327 (Version 2)
Quarter: 2022Q2

REPORT INFORMATION
  Report Type: Spontaneous
  Country: KR (occurrence: KR)
  Receive Date: 20220513
  Receipt Date: 20220523
  Transmission Date: 20220721
  Serious: Yes (Other)
  Sender: FDA-Public Use
  Company Number: KR-TAKEDA-2022TUS030755

PATIENT
  Age: 67 Year
  Sex: Male

DRUGS (5)
  1. ADCETRIS [Suspect]
     Active Substance: BRENTUXIMAB VEDOTIN
     Indication: Hodgkin^s disease nodular sclerosis
     Dosage: 1.2 MILLIGRAM/KILOGRAM
     Route: 065
     Dates: start: 20211113, end: 20220420
  2. VINBLASTINE [Suspect]
     Active Substance: VINBLASTINE
     Indication: Hodgkin^s disease nodular sclerosis
     Dosage: 6 MILLIGRAM/SQ. METER
     Route: 065
     Dates: start: 20211113, end: 20220420
  3. ADRIAMYCIN [Suspect]
     Active Substance: DOXORUBICIN HYDROCHLORIDE
     Indication: Hodgkin^s disease nodular sclerosis
     Dosage: 25 MILLIGRAM/SQ. METER
     Route: 065
     Dates: start: 20211113, end: 20220420
  4. DACARBAZINE [Suspect]
     Active Substance: DACARBAZINE
     Indication: Hodgkin^s disease nodular sclerosis
     Dosage: 375 MILLIGRAM/SQ. METER
     Route: 065
     Dates: start: 20211113, end: 20220420
  5. NEULASTA [Suspect]
     Active Substance: PEGFILGRASTIM
     Indication: Hodgkin^s disease nodular sclerosis
     Dosage: UNK
     Route: 065
     Dates: start: 20211113, end: 20220420

REACTIONS (4)
  - Vitreous detachment [Unknown]
  - Neuropathy peripheral [Unknown]
  - Peripheral venous disease [Unknown]
  - Sleep disorder [Unknown]
